FAERS Safety Report 20796424 (Version 3)
Quarter: 2022Q4

REPORT INFORMATION
  Report Type: Spontaneous
  Country: US (occurrence: US)
  Receive Date: 20220506
  Receipt Date: 20221028
  Transmission Date: 20230113
  Serious: Yes (Other)
  Sender: FDA-Public Use
  Company Number: US-SA-2022SA161396

PATIENT
  Age: 11 Year
  Sex: Male

DRUGS (2)
  1. ALPROLIX [Suspect]
     Active Substance: EFTRENONACOG ALFA
     Dosage: 5300 IU
  2. ALPROLIX [Suspect]
     Active Substance: EFTRENONACOG ALFA
     Dosage: 5300 IU

REACTIONS (2)
  - Haemarthrosis [Recovered/Resolved]
  - Spontaneous haemorrhage [Unknown]

NARRATIVE: CASE EVENT DATE: 20220410
